FAERS Safety Report 10476477 (Version 1)
Quarter: 2014Q3

REPORT INFORMATION
  Report Type: Spontaneous
  Country: CO (occurrence: CO)
  Receive Date: 20140925
  Receipt Date: 20140925
  Transmission Date: 20150326
  Serious: Yes (Hospitalization)
  Sender: FDA-Public Use
  Company Number: CO-VIIV HEALTHCARE LIMITED-A1090931A

PATIENT
  Age: 29 Year
  Sex: Male

DRUGS (2)
  1. EFAVIRENZ [Concomitant]
     Active Substance: EFAVIRENZ
  2. KIVEXA [Suspect]
     Active Substance: ABACAVIR SULFATE\LAMIVUDINE
     Indication: HIV INFECTION
     Dosage: 1TAB PER DAY
     Route: 048

REACTIONS (5)
  - Rash [Recovered/Resolved]
  - Drug hypersensitivity [Recovered/Resolved]
  - Local swelling [Recovered/Resolved]
  - Oedema [Recovered/Resolved]
  - Malaise [Recovered/Resolved]
